FAERS Safety Report 8823103 (Version 1)
Quarter: 2012Q4

REPORT INFORMATION
  Report Type: 
  Country: US (occurrence: US)
  Receive Date: 20121003
  Receipt Date: 20121003
  Transmission Date: 20130627
  Serious: Yes (Other)
  Sender: FDA-Public Use
  Company Number: US-ROCHE-1136176

PATIENT
  Sex: Male

DRUGS (8)
  1. RITUXAN [Suspect]
     Indication: THROMBOCYTOPENIA
     Route: 065
     Dates: start: 20020104
  2. RITUXAN [Suspect]
     Indication: IDIOPATHIC THROMBOCYTOPENIC PURPURA
     Route: 065
     Dates: start: 20020108
  3. RITUXAN [Suspect]
     Indication: OFF LABEL USE
     Route: 065
     Dates: start: 20020115
  4. ATENOLOL [Concomitant]
     Route: 048
  5. ATENOLOL [Concomitant]
     Route: 065
  6. IVIG [Concomitant]
     Route: 065
  7. TYLENOL [Concomitant]
     Route: 065
  8. BENADRYL [Concomitant]
     Route: 065

REACTIONS (8)
  - Purpura [Unknown]
  - Palpitations [Recovered/Resolved]
  - Gingival bleeding [Unknown]
  - Headache [Recovered/Resolved]
  - Idiosyncratic drug reaction [Recovered/Resolved]
  - Nasopharyngitis [Unknown]
  - Mouth haemorrhage [Recovered/Resolved]
  - Epistaxis [Unknown]
